FAERS Safety Report 8789537 (Version 1)
Quarter: 2012Q4

REPORT INFORMATION
  Report Type: Spontaneous
  Country: US (occurrence: None)
  Receive Date: 20120905
  Receipt Date: 20120905
  Transmission Date: 20130627
  Serious: Yes (Hospitalization)
  Sender: FDA-Public Use
  Company Number: FK201202555

PATIENT
  Age: 20 Year
  Sex: Male

DRUGS (5)
  1. CISPLATIN [Suspect]
     Indication: TESTIS CANCER
  2. ETOPOSIDE [Suspect]
     Indication: TESTIS CANCER
  3. BLEOMYCIN [Suspect]
     Indication: TESTIS CANCER
  4. IFOSFAMIDE [Suspect]
     Indication: TESTIS CANCER
  5. VINBLASTINE [Suspect]
     Indication: TESTIS CANCER

REACTIONS (9)
  - Lung disorder [None]
  - Pneumomediastinum [None]
  - Pulmonary haemorrhage [None]
  - Pneumothorax [None]
  - Subcutaneous emphysema [None]
  - Tumour haemorrhage [None]
  - Respiratory failure [None]
  - Metastases to lung [None]
  - Malignant neoplasm progression [None]
